FAERS Safety Report 8951105 (Version 1)
Quarter: 2012Q4

REPORT INFORMATION
  Report Type: 
  Country: US (occurrence: US)
  Receive Date: 20121207
  Receipt Date: 20121207
  Transmission Date: 20130627
  Serious: Yes (Other)
  Sender: FDA-Public Use
  Company Number: PHEH2012US012754

PATIENT
  Sex: Female

DRUGS (2)
  1. GLEEVEC [Suspect]
     Indication: GASTROINTESTINAL STROMAL TUMOUR
     Dosage: 400 mg, daily
     Route: 048
     Dates: start: 20120604
  2. GLEEVEC [Suspect]
     Dosage: 400 mg, daily
     Route: 048

REACTIONS (6)
  - Osteomyelitis [Unknown]
  - Nasopharyngitis [Unknown]
  - Rash [Unknown]
  - Headache [Unknown]
  - Nausea [Unknown]
  - Fatigue [Unknown]
